FAERS Safety Report 12052501 (Version 1)
Quarter: 2016Q1

REPORT INFORMATION
  Report Type: Spontaneous
  Country: US (occurrence: None)
  Receive Date: 20160208
  Receipt Date: 20160208
  Transmission Date: 20160526
  Serious: Yes (Hospitalization, Other)
  Sender: FDA-Public Use
  Company Number: None

PATIENT
  Age: 38 Year
  Sex: Male

DRUGS (9)
  1. METFORMIN [Concomitant]
     Active Substance: METFORMIN HYDROCHLORIDE
  2. SENNOSIDES. [Concomitant]
     Active Substance: SENNOSIDES
  3. OXYCODONE [Concomitant]
     Active Substance: OXYCODONE
  4. EXENATIDE [Suspect]
     Active Substance: EXENATIDE
     Indication: TYPE 2 DIABETES MELLITUS
     Dosage: MAMY MONTHS-YEARS 10 MCG BID SUBCUTANEOUS
     Route: 058
  5. ALBUTEROL. [Concomitant]
     Active Substance: ALBUTEROL
  6. GABAPENTIN. [Concomitant]
     Active Substance: GABAPENTIN
  7. OMEPRAZOLE. [Concomitant]
     Active Substance: OMEPRAZOLE
  8. HUMALIN [Concomitant]
     Active Substance: INSULIN NOS
  9. LISINOPRIL. [Concomitant]
     Active Substance: LISINOPRIL

REACTIONS (1)
  - Hypoglycaemia [None]

NARRATIVE: CASE EVENT DATE: 20160205
